FAERS Safety Report 8815970 (Version 3)
Quarter: 2012Q4

REPORT INFORMATION
  Report Type: 
  Country: US (occurrence: US)
  Receive Date: 20120928
  Receipt Date: 20121214
  Transmission Date: 20130627
  Serious: Yes (Hospitalization, Disabling, Other)
  Sender: FDA-Public Use
  Company Number: US-009507513-1205USA04405

PATIENT

DRUGS (8)
  1. FOSAMAX [Suspect]
     Indication: OSTEOPOROSIS
     Dosage: 70 mg, qw
     Route: 048
     Dates: start: 200202, end: 200801
  2. FOSAMAX [Suspect]
     Dosage: UNK
     Route: 048
     Dates: start: 200201
  3. FOSAMAX [Suspect]
     Indication: OSTEOPOROSIS
     Dosage: 70 mg, UNK
     Route: 048
     Dates: start: 200802, end: 200908
  4. ALENDRONATE SODIUM [Suspect]
     Dosage: 70 mg, qw
     Route: 048
     Dates: start: 20080327, end: 20081212
  5. FOSAMAX PLUS D [Suspect]
     Dosage: UNK, qw
     Route: 048
     Dates: start: 20080327
  6. CALCIUM (UNSPECIFIED) [Concomitant]
     Indication: OSTEOPOROSIS
     Dosage: 1200 IU, qd
     Dates: start: 2008
  7. HORMONES (UNSPECIFIED) [Concomitant]
     Dosage: UNK
     Dates: start: 2002, end: 2004
  8. SYNTHROID [Concomitant]
     Indication: HYPOTHYROIDISM

REACTIONS (71)
  - Femur fracture [Unknown]
  - Osteoporosis [Unknown]
  - Multiple fractures [Unknown]
  - Femur fracture [Unknown]
  - Bone density decreased [Unknown]
  - Open reduction of fracture [Unknown]
  - Tonsillectomy [Unknown]
  - Vertebroplasty [Unknown]
  - Appendicectomy [Unknown]
  - Pneumonia [Unknown]
  - Ischaemic cerebral infarction [Unknown]
  - Intervertebral disc protrusion [Unknown]
  - Adenoidectomy [Unknown]
  - Anaemia postoperative [Recovered/Resolved]
  - Hearing impaired [Unknown]
  - Carotid endarterectomy [Unknown]
  - Cerebrovascular accident [Unknown]
  - Cholecystitis acute [Unknown]
  - Cholecystectomy [Unknown]
  - Dry eye [Unknown]
  - Spinal compression fracture [Unknown]
  - Herpes zoster [Unknown]
  - Blood cholesterol increased [Unknown]
  - Depression [Unknown]
  - Road traffic accident [Unknown]
  - Head injury [Unknown]
  - Adverse event [Unknown]
  - Depression suicidal [Unknown]
  - Pollakiuria [Unknown]
  - Musculoskeletal pain [Unknown]
  - Abdominal discomfort [Unknown]
  - Drug tolerance [Unknown]
  - Osteopenia [Unknown]
  - Visual impairment [Unknown]
  - Road traffic accident [Unknown]
  - Post-traumatic neck syndrome [Unknown]
  - Limb asymmetry [Unknown]
  - Carotid artery stenosis [Unknown]
  - Nystagmus [Unknown]
  - Bursitis [Unknown]
  - Cerebral atrophy [Unknown]
  - Bronchitis [Unknown]
  - Osteoarthritis [Unknown]
  - Neuropathy peripheral [Unknown]
  - Suicidal ideation [Unknown]
  - Osteoarthritis [Unknown]
  - Cubital tunnel syndrome [Unknown]
  - Sciatica [Unknown]
  - Haemorrhoids [Unknown]
  - Haemorrhoid operation [Unknown]
  - Bronchitis [Unknown]
  - Contusion [Unknown]
  - Tendonitis [Unknown]
  - Exostosis [Unknown]
  - Crohn^s disease [Unknown]
  - Spinal osteoarthritis [Unknown]
  - Bone marrow oedema [Unknown]
  - Muscle strain [Unknown]
  - Hypertension [Unknown]
  - Cataract [Unknown]
  - Pain in extremity [Unknown]
  - Malaise [Unknown]
  - Flatulence [Unknown]
  - Diarrhoea [Unknown]
  - Headache [Unknown]
  - Headache [Unknown]
  - Headache [Unknown]
  - Memory impairment [Unknown]
  - Hypoaesthesia [Unknown]
  - Hypoaesthesia [Unknown]
  - Functional gastrointestinal disorder [Recovering/Resolving]
